FAERS Safety Report 8444234-8 (Version None)
Quarter: 2012Q2

REPORT INFORMATION
  Report Type: 
  Country: None (occurrence: None)
  Receive Date: 20120618
  Receipt Date: 20120515
  Transmission Date: 20120825
  Serious: No
  Sender: FDA-Public Use
  Company Number: US-GLAXOSMITHKLINE-A0977695A

PATIENT
  Age: 74 Year
  Sex: Female

DRUGS (5)
  1. OLUX [Suspect]
     Indication: DERMATITIS
     Route: 061
     Dates: start: 20120514
  2. DIABETES MEDICATION [Concomitant]
  3. SUDAFED 12 HOUR [Concomitant]
  4. HEART MEDICATION [Concomitant]
  5. MUCINEX [Concomitant]

REACTIONS (1)
  - EXPIRED DRUG ADMINISTERED [None]
